FAERS Safety Report 23098102 (Version 9)
Quarter: 2024Q3

REPORT INFORMATION
  Report Type: Spontaneous
  Country: US (occurrence: US)
  Receive Date: 20231023
  Receipt Date: 20240926
  Transmission Date: 20241017
  Serious: No
  Sender: VERTEX
  Company Number: US-VERTEX PHARMACEUTICALS-2023-015801

PATIENT

DRUGS (5)
  1. TRIKAFTA [Suspect]
     Active Substance: ELEXACAFTOR\IVACAFTOR\TEZACAFTOR
     Indication: Cystic fibrosis
     Dosage: TWO ORANGE TABS TWICE A WEEK (ON MONDAY AND THURSDAY) FOR 6 MONTHS. NO NIGHT DOSES.
     Route: 048
  2. RIFABUTIN [Suspect]
     Active Substance: RIFABUTIN
     Indication: Mycobacterium avium complex infection
     Dosage: UNKNOWN DOSAGE REGIMEN
     Route: 065
     Dates: start: 2018, end: 2023
  3. ETHAMBUTOL [Suspect]
     Active Substance: ETHAMBUTOL HYDROCHLORIDE
     Indication: Mycobacterium avium complex infection
     Dosage: UNKNOWN DOSAGE REGIMEN
     Route: 048
     Dates: start: 2018, end: 2023
  4. AZITHROMYCIN [Suspect]
     Active Substance: AZITHROMYCIN
     Indication: Mycobacterium avium complex infection
     Dosage: UNKNOWN DOSAGE REGIMEN
     Route: 048
     Dates: start: 2018, end: 2023
  5. VORICONAZOLE [Concomitant]
     Active Substance: VORICONAZOLE

REACTIONS (15)
  - Depression [Unknown]
  - Mycobacterium avium complex infection [Recovered/Resolved]
  - Nausea [Recovered/Resolved]
  - Vomiting [Recovered/Resolved]
  - Fatigue [Recovered/Resolved]
  - Depersonalisation/derealisation disorder [Not Recovered/Not Resolved]
  - Bacterial infection [Unknown]
  - Anxiety [Recovering/Resolving]
  - Panic attack [Unknown]
  - Brain fog [Unknown]
  - Weight decreased [Unknown]
  - Pneumonia bacterial [Not Recovered/Not Resolved]
  - Haemoptysis [Not Recovered/Not Resolved]
  - Gastrointestinal disorder [Not Recovered/Not Resolved]
  - Headache [Recovered/Resolved]

NARRATIVE: CASE EVENT DATE: 20210101
